FAERS Safety Report 7256771-2 (Version None)
Quarter: 2011Q1

REPORT INFORMATION
  Report Type: 
  Country: None (occurrence: None)
  Receive Date: 20110129
  Receipt Date: 20100712
  Transmission Date: 20110831
  Serious: Yes (Hospitalization)
  Sender: FDA-Public Use
  Company Number: US-ABBOTT-10P-163-0656891-00

PATIENT
  Sex: Female
  Weight: 61.29 kg

DRUGS (4)
  1. WELLBUTRIN [Concomitant]
     Indication: DEPRESSION
  2. HUMIRA [Suspect]
     Indication: ARTHRITIS
  3. HUMIRA [Suspect]
     Indication: CROHN'S DISEASE
  4. FOSAMAX [Concomitant]
     Indication: OSTEOPOROSIS

REACTIONS (6)
  - CROHN'S DISEASE [None]
  - INJECTION SITE PAIN [None]
  - WEIGHT DECREASED [None]
  - VOMITING [None]
  - PYREXIA [None]
  - PAIN [None]
